FAERS Safety Report 11092905 (Version 1)
Quarter: 2015Q2

REPORT INFORMATION
  Report Type: Spontaneous
  Country: US (occurrence: US)
  Receive Date: 20150506
  Receipt Date: 20150506
  Transmission Date: 20150821
  Serious: Yes (Hospitalization)
  Sender: FDA-Public Use
  Company Number: US-B.I. PHARMACEUTICALS,INC./RIDGEFIELD-2015-BI-23673PF

PATIENT
  Sex: Male

DRUGS (3)
  1. SPIRIVA [Suspect]
     Active Substance: TIOTROPIUM BROMIDE MONOHYDRATE
     Indication: DYSPNOEA
     Dosage: 18 MCG
     Route: 065
     Dates: start: 199706
  2. METAXALONE. [Suspect]
     Active Substance: METAXALONE
     Indication: NECK PAIN
     Route: 065
     Dates: start: 199706
  3. METAXALONE. [Suspect]
     Active Substance: METAXALONE
     Indication: BACK PAIN

REACTIONS (5)
  - Spinal cord injury cervical [Not Recovered/Not Resolved]
  - Throat cancer [Not Recovered/Not Resolved]
  - Spinal cord injury lumbar [Not Recovered/Not Resolved]
  - Neck pain [Not Recovered/Not Resolved]
  - Back pain [Not Recovered/Not Resolved]
